FAERS Safety Report 8164479-4 (Version None)
Quarter: 2012Q1

REPORT INFORMATION
  Report Type: 
  Country: None (occurrence: None)
  Receive Date: 20120224
  Receipt Date: 20120217
  Transmission Date: 20120608
  Serious: Yes (Hospitalization)
  Sender: FDA-Public Use
  Company Number: US-GILEAD-2011-0036552

PATIENT
  Age: 33 Year
  Sex: Female

DRUGS (4)
  1. CEPHALEXIN [Concomitant]
     Dates: start: 20101014, end: 20101018
  2. ACETAMINOPHEN [Concomitant]
     Dates: start: 20101208
  3. FOLIC ACID/FERROUS FUMARATE [Concomitant]
  4. TENOFOVIR DISOPROXIL FUMARATE [Suspect]
     Indication: HIV INFECTION
     Dates: start: 20100624, end: 20101014

REACTIONS (2)
  - URINARY TRACT INFECTION [None]
  - PREGNANCY [None]
